FAERS Safety Report 15798413 (Version 2)
Quarter: 2021Q2

REPORT INFORMATION
  Report Type: Spontaneous
  Country: IS (occurrence: IS)
  Receive Date: 20190108
  Receipt Date: 20210429
  Transmission Date: 20210716
  Serious: Yes (Other)
  Sender: FDA-Public Use
  Company Number: PHHY2019IS000713

PATIENT
  Sex: Female

DRUGS (1)
  1. IMATINIB. [Suspect]
     Active Substance: IMATINIB MESYLATE
     Indication: IMMUNOSUPPRESSANT DRUG THERAPY
     Dosage: UNK, UNKNOWN
     Route: 065

REACTIONS (1)
  - Autoimmune hepatitis [Unknown]
